FAERS Safety Report 6249637-8 (Version None)
Quarter: 2009Q2

REPORT INFORMATION
  Report Type: 
  Country: None (occurrence: None)
  Receive Date: 20090629
  Receipt Date: 20090623
  Transmission Date: 20091009
  Serious: Yes (Other)
  Sender: FDA-Public Use
  Company Number: US-ELI_LILLY_AND_COMPANY-US200906005317

PATIENT
  Sex: Female

DRUGS (5)
  1. HUMULIN N [Suspect]
     Indication: TYPE 2 DIABETES MELLITUS
     Dates: start: 19970101
  2. HUMALOG [Suspect]
     Dates: start: 20010101
  3. LORAZEPAM [Concomitant]
  4. REQUIP [Concomitant]
  5. LORTAB [Concomitant]
     Indication: PAIN MANAGEMENT

REACTIONS (6)
  - ANXIETY [None]
  - EYE DISORDER [None]
  - MUSCULOSKELETAL DISCOMFORT [None]
  - RESTLESS LEGS SYNDROME [None]
  - RETINAL INJURY [None]
  - VISUAL IMPAIRMENT [None]
